FAERS Safety Report 4319707-X (Version None)
Quarter: 2004Q1

REPORT INFORMATION
  Report Type: 
  Country: None (occurrence: None)
  Receive Date: 20040316
  Receipt Date: 20040302
  Transmission Date: 20041129
  Serious: Yes (Other)
  Sender: FDA-Public Use
  Company Number: USA040360801

PATIENT
  Age: 66 Year
  Sex: Male
  Weight: 91 kg

DRUGS (3)
  1. HUMULIN N [Suspect]
     Indication: BLOOD GLUCOSE INCREASED
     Dates: start: 20000901, end: 20010201
  2. HUMULIN 70/30 [Suspect]
     Indication: BLOOD GLUCOSE INCREASED
     Dosage: 95 U DAY
  3. STARLIX [Concomitant]

REACTIONS (10)
  - ARTERIAL OCCLUSIVE DISEASE [None]
  - BLOOD GLUCOSE INCREASED [None]
  - BURNING SENSATION [None]
  - CARDIAC DISORDER [None]
  - CYSTITIS [None]
  - DIFFICULTY IN WALKING [None]
  - EYE DISORDER [None]
  - KIDNEY INFECTION [None]
  - SELF-MEDICATION [None]
  - SKIN CANCER [None]
